FAERS Safety Report 10172755 (Version 1)
Quarter: 2014Q2

REPORT INFORMATION
  Report Type: Spontaneous
  Country: US (occurrence: None)
  Receive Date: 20140513
  Receipt Date: 20140513
  Transmission Date: 20141212
  Serious: Yes (Other)
  Sender: FDA-Public Use
  Company Number: AUR-APL-2014-05496

PATIENT
  Age: 56 Year
  Sex: Female

DRUGS (1)
  1. CITALOPRAM [Suspect]
     Indication: ANTIDEPRESSANT THERAPY
     Dosage: 20 MG, 1 D

REACTIONS (7)
  - Hepatic necrosis [None]
  - Liver injury [None]
  - Asthenia [None]
  - Asthenia [None]
  - Weight decreased [None]
  - Jaundice [None]
  - Hepatomegaly [None]
